FAERS Safety Report 7468629-4 (Version None)
Quarter: 2011Q2

REPORT INFORMATION
  Report Type: 
  Country: None (occurrence: None)
  Receive Date: 20110510
  Receipt Date: 20110105
  Transmission Date: 20111010
  Serious: No
  Sender: FDA-Public Use
  Company Number: US-BAYER-2011-002598

PATIENT
  Sex: Female

DRUGS (5)
  1. ATENOLOL [Concomitant]
  2. AVELOX [Suspect]
     Indication: INFECTION
     Dosage: 400 MG, QD
     Route: 048
     Dates: start: 20110104
  3. ASPIRIN [Concomitant]
  4. ZOCOR [Concomitant]
  5. DEXTROMETHORPHAN HYDROBROMIDE [Concomitant]

REACTIONS (1)
  - INSOMNIA [None]
